FAERS Safety Report 12688317 (Version 1)
Quarter: 2016Q3

REPORT INFORMATION
  Report Type: Spontaneous
  Country: US (occurrence: US)
  Receive Date: 20160825
  Receipt Date: 20160825
  Transmission Date: 20161109
  Serious: No
  Sender: FDA-Public Use
  Company Number: US-ASTRAZENECA-2016SE87935

PATIENT
  Age: 821 Month
  Sex: Female
  Weight: 66.7 kg

DRUGS (7)
  1. NEXIUM [Suspect]
     Active Substance: ESOMEPRAZOLE MAGNESIUM
     Indication: GASTROOESOPHAGEAL REFLUX DISEASE
     Route: 048
  2. NEXIUM [Suspect]
     Active Substance: ESOMEPRAZOLE MAGNESIUM
     Indication: GASTROOESOPHAGEAL REFLUX DISEASE
     Route: 048
     Dates: start: 201601, end: 201605
  3. MULTIVITAMIN [Concomitant]
     Active Substance: VITAMINS
     Indication: DIET FAILURE
     Dosage: DAILY
     Route: 048
  4. FLORASTOR PROBIOTIC [Concomitant]
     Indication: IRRITABLE BOWEL SYNDROME
     Dosage: DAILY
     Route: 048
  5. TUSSINEX [Concomitant]
     Active Substance: BROMHEXINE
     Indication: COUGH
     Route: 048
  6. NEXIUM [Suspect]
     Active Substance: ESOMEPRAZOLE MAGNESIUM
     Indication: GASTROOESOPHAGEAL REFLUX DISEASE
     Route: 048
     Dates: start: 201605
  7. PROLIA [Concomitant]
     Active Substance: DENOSUMAB
     Indication: OSTEOPOROSIS
     Route: 058
     Dates: start: 20160729

REACTIONS (7)
  - Nausea [Unknown]
  - Osteoporosis [Unknown]
  - Osteopenia [Unknown]
  - Body height decreased [Unknown]
  - Bone disorder [Unknown]
  - Incorrect drug administration duration [Recovered/Resolved]
  - Decreased appetite [Unknown]

NARRATIVE: CASE EVENT DATE: 201605
